FAERS Safety Report 20673600 (Version 1)
Quarter: 2022Q2

REPORT INFORMATION
  Report Type: Report from Study
  Country: ES (occurrence: ES)
  Receive Date: 20220405
  Receipt Date: 20220405
  Transmission Date: 20220721
  Serious: Yes (Other)
  Sender: FDA-Public Use
  Company Number: ES-GLAXOSMITHKLINE-ES2022EME058416

PATIENT
  Sex: Female

DRUGS (3)
  1. MEPOLIZUMAB [Suspect]
     Active Substance: MEPOLIZUMAB
     Indication: Asthma
     Dosage: UNK, Z (EVERY 4 WEEKS)
     Route: 058
     Dates: start: 2021, end: 202110
  2. SPIRIVA [Concomitant]
     Active Substance: TIOTROPIUM BROMIDE MONOHYDRATE
     Indication: Product used for unknown indication
     Dosage: UNK
  3. FOSTER [Concomitant]
     Active Substance: BECLOMETHASONE\FORMOTEROL
     Indication: Product used for unknown indication
     Dosage: UNK

REACTIONS (3)
  - Cachexia [Recovered/Resolved]
  - Fatigue [Unknown]
  - Idiopathic environmental intolerance [Unknown]
